FAERS Safety Report 22750878 (Version 2)
Quarter: 2024Q2

REPORT INFORMATION
  Report Type: Report from Study
  Country: US (occurrence: US)
  Receive Date: 20230726
  Receipt Date: 20240530
  Transmission Date: 20240716
  Serious: No
  Sender: FDA-Public Use
  Company Number: US-SA-SAC20230724000533

PATIENT
  Age: 2 Year
  Sex: Female
  Weight: 11.7 kg

DRUGS (1)
  1. DUPIXENT [Suspect]
     Active Substance: DUPILUMAB
     Indication: Dermatitis atopic
     Dosage: 200 MG, Q4W
     Route: 058

REACTIONS (6)
  - Rash erythematous [Not Recovered/Not Resolved]
  - Discomfort [Unknown]
  - Ocular hyperaemia [Unknown]
  - Dermatitis atopic [Not Recovered/Not Resolved]
  - Eye pruritus [Unknown]
  - Therapeutic response shortened [Unknown]

NARRATIVE: CASE EVENT DATE: 20240517
